FAERS Safety Report 15732515 (Version 1)
Quarter: 2018Q4

REPORT INFORMATION
  Report Type: Spontaneous
  Country: US (occurrence: US)
  Receive Date: 20181217
  Receipt Date: 20181217
  Transmission Date: 20190205
  Serious: Yes (Hospitalization)
  Sender: FDA-Public Use
  Company Number: US-VIFOR (INTERNATIONAL) INC.-VIT-2018-03626

PATIENT
  Sex: Female

DRUGS (14)
  1. ACETAMINOPHEN. [Concomitant]
     Active Substance: ACETAMINOPHEN
  2. PLAVIX [Concomitant]
     Active Substance: CLOPIDOGREL BISULFATE
  3. ASPIRIN. [Concomitant]
     Active Substance: ASPIRIN
  4. FERROUS SULFATE. [Concomitant]
     Active Substance: FERROUS SULFATE
  5. XALATAN [Concomitant]
     Active Substance: LATANOPROST
  6. VELTASSA [Suspect]
     Active Substance: PATIROMER
     Indication: HYPERKALAEMIA
     Route: 065
  7. ATORVASTATIN CALCIUM. [Concomitant]
     Active Substance: ATORVASTATIN CALCIUM
  8. DRISDOL [Concomitant]
     Active Substance: ERGOCALCIFEROL
  9. LOTRIMIN AF ANTIFUNGAL [Concomitant]
     Active Substance: MICONAZOLE NITRATE
  10. SYNTHROID [Concomitant]
     Active Substance: LEVOTHYROXINE SODIUM
  11. ZOFRAN [Concomitant]
     Active Substance: ONDANSETRON HYDROCHLORIDE
  12. CARDURA [Concomitant]
     Active Substance: DOXAZOSIN MESYLATE
  13. HUMALOG [Concomitant]
     Active Substance: INSULIN LISPRO
  14. KEFLEX [Concomitant]
     Active Substance: CEPHALEXIN

REACTIONS (8)
  - Coma [Unknown]
  - Syncope [Unknown]
  - Weight decreased [Unknown]
  - Surgery [Unknown]
  - Gastrointestinal infection [Unknown]
  - Diarrhoea [Unknown]
  - Hospitalisation [Unknown]
  - Vomiting [Unknown]
